FAERS Safety Report 12325627 (Version 1)
Quarter: 2016Q2

REPORT INFORMATION
  Report Type: Spontaneous
  Country: CO (occurrence: CO)
  Receive Date: 20160503
  Receipt Date: 20160503
  Transmission Date: 20160815
  Serious: Yes (Disabling, Other)
  Sender: FDA-Public Use
  Company Number: PHHY2016CO056075

PATIENT
  Sex: Male
  Weight: 80 kg

DRUGS (3)
  1. DICLOFENAC [Concomitant]
     Active Substance: DICLOFENAC
     Indication: MYALGIA
     Dosage: 75 MG, QD
     Route: 030
     Dates: start: 20160415
  2. DEXAMETHASONE. [Concomitant]
     Active Substance: DEXAMETHASONE
     Indication: MYALGIA
     Dosage: 4 MG, EVERY 4 DAYS
     Route: 030
     Dates: start: 20160415
  3. REVOLADE [Suspect]
     Active Substance: ELTROMBOPAG
     Indication: IMMUNE THROMBOCYTOPENIC PURPURA
     Dosage: 25 MG, QD
     Route: 048
     Dates: start: 20151105

REACTIONS (7)
  - Somnolence [Unknown]
  - Malaise [Unknown]
  - Spondylolysis [Unknown]
  - Fatigue [Unknown]
  - Lumbar vertebral fracture [Unknown]
  - Vision blurred [Unknown]
  - Headache [Unknown]
